FAERS Safety Report 15693472 (Version 3)
Quarter: 2025Q3

REPORT INFORMATION
  Report Type: Spontaneous
  Country: EU (occurrence: EU)
  Receive Date: 20181206
  Receipt Date: 20250701
  Transmission Date: 20251021
  Serious: Yes (Other)
  Sender: AUROBINDO
  Company Number: None

PATIENT
  Sex: Male
  Weight: 2.21 kg

DRUGS (5)
  1. ACETAMINOPHEN [Suspect]
     Active Substance: ACETAMINOPHEN
     Indication: Analgesic therapy
     Dosage: 1 GRAM, 3 TIMES A DAY (3 GRAM, ONCE A DAY)
     Route: 064
  2. ACETAMINOPHEN [Suspect]
     Active Substance: ACETAMINOPHEN
     Indication: Renal colic
     Dosage: UNK, FOUR TIMES/DAY
     Route: 064
  3. ACETAMINOPHEN [Suspect]
     Active Substance: ACETAMINOPHEN
     Route: 064
  4. AMOXICILLIN\CLAVULANIC ACID [Suspect]
     Active Substance: AMOXICILLIN\CLAVULANIC ACID
     Indication: Antibiotic therapy
     Route: 064
  5. BUTYLSCOPOLAMINE BROMIDE [Suspect]
     Active Substance: BUTYLSCOPOLAMINE BROMIDE
     Indication: Analgesic therapy
     Route: 064

REACTIONS (9)
  - Pericardial effusion [Recovered/Resolved]
  - Ductus arteriosus stenosis foetal [Recovered/Resolved]
  - Ventricular hypertrophy [Recovered/Resolved]
  - Foetal exposure during pregnancy [Recovered/Resolved]
  - Respiratory failure [Recovered/Resolved]
  - Tricuspid valve incompetence [Recovered/Resolved]
  - Right atrial enlargement [Unknown]
  - Pulmonary valve incompetence [Recovered/Resolved]
  - Right ventricular hypertrophy [Recovered/Resolved]
